FAERS Safety Report 9866884 (Version 8)
Quarter: 2014Q3

REPORT INFORMATION
  Report Type: Spontaneous
  Country: US (occurrence: None)
  Receive Date: 20140131
  Receipt Date: 20140826
  Transmission Date: 20150326
  Serious: Yes (Hospitalization)
  Sender: FDA-Public Use
  Company Number: US-000844

PATIENT
  Age: 64 Year
  Sex: Female

DRUGS (16)
  1. SOLUTIONS FOR PARENTERAL NUTRITION [Concomitant]
     Active Substance: AMINO ACIDS\DEXTROSE\ELECTROLYTES NOS
  2. FOLIC ACID. [Concomitant]
     Active Substance: FOLIC ACID
  3. GATTEX [Suspect]
     Active Substance: TEDUGLUTIDE\WATER
     Indication: SHORT-BOWEL SYNDROME
     Dosage: (0.45 ML QD, STREN/VOLUM: 0.45 ML| FREQU: ONCE A DAY SUBCUTANEOUS)
     Route: 058
     Dates: start: 20130817, end: 201401
  4. CENTRUM [Concomitant]
     Active Substance: VITAMINS
  5. VITAMIN A [Concomitant]
     Active Substance: VITAMIN A
  6. HYDROCODONE [Concomitant]
     Active Substance: HYDROCODONE
  7. ASPRIN [Concomitant]
     Active Substance: ASPIRIN
  8. MULTIPLE VITAMINS [Concomitant]
     Active Substance: VITAMINS
  9. POTASSIUM GLUCONATE [Concomitant]
     Active Substance: POTASSIUM GLUCONATE
  10. PLAVIX [Concomitant]
     Active Substance: CLOPIDOGREL BISULFATE
  11. FAT EMULSION NOS [Concomitant]
     Active Substance: EGG PHOSPHOLIPIDS\SAFFLOWER OIL\SOYBEAN OIL
  12. BENADRYL [Concomitant]
     Active Substance: DIPHENHYDRAMINE HYDROCHLORIDE
  13. PROZAC [Concomitant]
     Active Substance: FLUOXETINE HYDROCHLORIDE
  14. PRAVASTATIN [Concomitant]
     Active Substance: PRAVASTATIN\PRAVASTATIN SODIUM
  15. VITAMIN D [Concomitant]
     Active Substance: CHOLECALCIFEROL
  16. VITAMIN B COMPLEX [Concomitant]
     Active Substance: CYANOCOBALAMIN\DEXPANTHENOL\NIACINAMIDE\PYRIDOXINE HYDROCHLORIDE\RIBOFLAVIN 5^-PHOSPHATE SODIUM\THIAMINE HYDROCHLORIDE\VITAMIN B COMPLEX

REACTIONS (29)
  - Inflammation [None]
  - Viral infection [None]
  - Hepatic steatosis [None]
  - Abdominal pain [None]
  - Catheter site swelling [None]
  - Intestinal obstruction [None]
  - Application site inflammation [None]
  - Erythema [None]
  - Weight increased [None]
  - Gastrointestinal sounds abnormal [None]
  - Catheter site inflammation [None]
  - Blood sodium decreased [None]
  - Head discomfort [None]
  - Application site swelling [None]
  - Discomfort [None]
  - Abdominal distension [None]
  - Pruritus [None]
  - Pancreatitis [None]
  - Catheter site discharge [None]
  - Deep vein thrombosis [None]
  - Abdominal discomfort [None]
  - Abdominal adhesions [None]
  - Vomiting [None]
  - Abdominal tenderness [None]
  - Headache [None]
  - Cholecystitis [None]
  - Catheter site erythema [None]
  - Gastrointestinal disorder [None]
  - Pulmonary embolism [None]

NARRATIVE: CASE EVENT DATE: 201308
